FAERS Safety Report 13940289 (Version 1)
Quarter: 2017Q3

REPORT INFORMATION
  Report Type: Spontaneous
  Country: CA (occurrence: CA)
  Receive Date: 20170906
  Receipt Date: 20170906
  Transmission Date: 20171127
  Serious: Yes (Death, Other)
  Sender: FDA-Public Use
  Company Number: CA-APOTEX-2017AP017489

PATIENT
  Age: 56 Year
  Sex: Male

DRUGS (1)
  1. GRASTOFIL [Suspect]
     Active Substance: FILGRASTIM
     Indication: PRODUCT USED FOR UNKNOWN INDICATION
     Dosage: 300 MCG PER 0.5 ML
     Route: 065
     Dates: start: 20161125, end: 2017

REACTIONS (1)
  - Death [Fatal]

NARRATIVE: CASE EVENT DATE: 20170518
